FAERS Safety Report 10842296 (Version 1)
Quarter: 2015Q1

REPORT INFORMATION
  Report Type: Spontaneous
  Country: US (occurrence: US)
  Receive Date: 20150220
  Receipt Date: 20150220
  Transmission Date: 20150721
  Serious: Yes (Other)
  Sender: FDA-Public Use
  Company Number: US-PFIZER INC-2015057422

PATIENT
  Age: 38 Year
  Sex: Female

DRUGS (1)
  1. DEPO-PROVERA [Suspect]
     Active Substance: MEDROXYPROGESTERONE ACETATE
     Indication: CONTRACEPTION
     Dosage: 3 SHOTS
     Route: 030
     Dates: start: 2004

REACTIONS (4)
  - Thrombosis [Unknown]
  - Epistaxis [Unknown]
  - Varicose vein [Unknown]
  - Weight increased [Unknown]
